FAERS Safety Report 6273345 (Version 2)
Quarter: 2012Q4

REPORT INFORMATION
  Report Type: 
  Country: JP (occurrence: JP)
  Receive Date: 20070328
  Receipt Date: 20120830
  Transmission Date: 20130627
  Serious: Yes (Hospitalization, Other)
  Sender: FDA-Public Use
  Company Number: PHBS2007JP02302

PATIENT
  Age: 76 Year
  Sex: Female
  Weight: 45 kg

DRUGS (8)
  1. GLIVEC [Suspect]
     Indication: CHRONIC MYELOID LEUKAEMIA
     Dosage: 200 mg, daily
     Route: 048
     Dates: start: 200201
  2. GLIVEC [Suspect]
     Dosage: 200 mg, daily
     Route: 048
     Dates: start: 20040628, end: 20070220
  3. PREDONINE [Suspect]
     Indication: PROPHYLAXIS
     Dosage: 5 mg, UNK
     Route: 048
     Dates: start: 20051219, end: 20070220
  4. MAGNESIUM OXIDE HEAVY [Concomitant]
     Indication: CONSTIPATION
     Dosage: 1 g, UNK
     Route: 048
     Dates: start: 20000703, end: 20070220
  5. SPASMO-MUCOSOLVAN [Concomitant]
     Indication: BRONCHITIS CHRONIC
     Dosage: 45 mg, UNK
     Route: 048
     Dates: start: 20000703, end: 20070220
  6. LAC B [Concomitant]
     Dosage: 3 g, UNK
     Route: 048
     Dates: start: 20000703, end: 20070220
  7. HYDREA [Concomitant]
  8. CYMERIN [Concomitant]
     Dosage: UNK UKN, UNK
     Dates: start: 200509

REACTIONS (12)
  - Acute hepatitis B [Unknown]
  - Liver disorder [Not Recovered/Not Resolved]
  - Gastric cancer [Unknown]
  - Second primary malignancy [Unknown]
  - Eating disorder [Unknown]
  - Hepatic failure [Unknown]
  - Pancytopenia [Unknown]
  - Pyrexia [Unknown]
  - Eczema asteatotic [Not Recovered/Not Resolved]
  - Skin exfoliation [Not Recovered/Not Resolved]
  - Dry skin [Unknown]
  - Rash [Unknown]
